FAERS Safety Report 17065379 (Version 2)
Quarter: 2019Q4

REPORT INFORMATION
  Report Type: Report from Study
  Country: US (occurrence: US)
  Receive Date: 20191122
  Receipt Date: 20191202
  Transmission Date: 20200122
  Serious: Yes (Hospitalization)
  Sender: FDA-Public Use
  Company Number: US-TAKEDA-2018TUS001718

PATIENT
  Sex: Male

DRUGS (2)
  1. PONATINIB [Suspect]
     Active Substance: PONATINIB
     Dosage: 15 MILLIGRAM, QD
     Route: 048
  2. PONATINIB [Suspect]
     Active Substance: PONATINIB
     Indication: CHRONIC MYELOID LEUKAEMIA
     Dosage: 45 MILLIGRAM, QD
     Route: 048
     Dates: start: 201709

REACTIONS (8)
  - Diarrhoea [Unknown]
  - Hypoaesthesia [Unknown]
  - Infection [Unknown]
  - Memory impairment [Unknown]
  - Haemorrhage [Unknown]
  - Paraesthesia [Unknown]
  - Muscular weakness [Recovering/Resolving]
  - Rash [Unknown]
